FAERS Safety Report 15757950 (Version 1)
Quarter: 2018Q4

REPORT INFORMATION
  Report Type: Spontaneous
  Country: FR (occurrence: FR)
  Receive Date: 20181225
  Receipt Date: 20181225
  Transmission Date: 20190205
  Serious: Yes (Hospitalization)
  Sender: FDA-Public Use
  Company Number: FR-ACCORD-097456

PATIENT
  Age: 84 Year
  Sex: Female
  Weight: 105 kg

DRUGS (9)
  1. CORDARONE [Concomitant]
     Active Substance: AMIODARONE HYDROCHLORIDE
     Dosage: 200 MG, SCORED TABLET
  2. ARCOXIA [Concomitant]
     Active Substance: ETORICOXIB
     Dosage: 30 MG FILM-COATED TABLETS
  3. IRBESARTAN. [Concomitant]
     Active Substance: IRBESARTAN
  4. AMLODIPINE [Suspect]
     Active Substance: AMLODIPINE BESYLATE
     Indication: HYPERTENSION
     Route: 048
     Dates: end: 201802
  5. DICLOFENAC [Concomitant]
     Active Substance: DICLOFENAC
     Route: 061
  6. LANSOPRAZOLE. [Concomitant]
     Active Substance: LANSOPRAZOLE
  7. PREVISCAN [Concomitant]
     Dosage: 20 MG, SCORED TABLET
  8. BROMAZEPAM [Concomitant]
     Active Substance: BROMAZEPAM
  9. NEBIVOLOL. [Concomitant]
     Active Substance: NEBIVOLOL

REACTIONS (1)
  - Lymphoedema [Recovering/Resolving]

NARRATIVE: CASE EVENT DATE: 20180128
